FAERS Safety Report 7358881-8 (Version None)
Quarter: 2011Q1

REPORT INFORMATION
  Report Type: 
  Country: None (occurrence: None)
  Receive Date: 20110317
  Receipt Date: 20110315
  Transmission Date: 20110831
  Serious: No
  Sender: FDA-Public Use
  Company Number: US-PFIZER INC-2011057337

PATIENT
  Sex: Male
  Weight: 79 kg

DRUGS (2)
  1. PRISTIQ [Suspect]
     Indication: DEPRESSION
     Dosage: 50 MG, 1X/DAY
     Route: 048
     Dates: start: 20090101, end: 20110301
  2. TRAZODONE [Concomitant]
     Dosage: UNK

REACTIONS (3)
  - IRRITABILITY [None]
  - CRYING [None]
  - FATIGUE [None]
